FAERS Safety Report 19759853 (Version 1)
Quarter: 2021Q3

REPORT INFORMATION
  Report Type: Spontaneous
  Country: US (occurrence: US)
  Receive Date: 20210830
  Receipt Date: 20210830
  Transmission Date: 20211014
  Serious: No
  Sender: FDA-Public Use
  Company Number: US-DRREDDYS-SPO/USA/21/0139447

PATIENT
  Age: 14 Year
  Sex: Female

DRUGS (1)
  1. ZENATANE [Suspect]
     Active Substance: ISOTRETINOIN
     Indication: PRODUCT USED FOR UNKNOWN INDICATION
     Dosage: RMA ISSUE DATE: 27/APR/2021 12:28:57 PM, 26/MAY/2021 11:32:24 AM AND 30/JUN/2021 8:59:01 AM

REACTIONS (1)
  - Therapy cessation [Unknown]
